FAERS Safety Report 16052424 (Version 1)
Quarter: 2019Q1

REPORT INFORMATION
  Report Type: Spontaneous
  Country: CN (occurrence: CN)
  Receive Date: 20190308
  Receipt Date: 20190308
  Transmission Date: 20190418
  Serious: Yes (Hospitalization)
  Sender: FDA-Public Use
  Company Number: CN-BAYER-2019-042985

PATIENT
  Age: 69 Year
  Sex: Male
  Weight: 70 kg

DRUGS (2)
  1. CEFOPERAZONE SODIUM AND TAZOBACTAM SODIUM [Suspect]
     Active Substance: CEFOPERAZONE\TAZOBACTAM SODIUM
     Indication: MEDIASTINITIS
     Dosage: 2.25 G, TID
     Route: 041
     Dates: start: 20181207, end: 20181218
  2. AVELOX [Suspect]
     Active Substance: MOXIFLOXACIN HYDROCHLORIDE
     Indication: MEDIASTINITIS
     Dosage: 0.4 G, QD
     Route: 041
     Dates: start: 20181208, end: 20181218

REACTIONS (1)
  - Coagulopathy [Recovering/Resolving]

NARRATIVE: CASE EVENT DATE: 20181217
